FAERS Safety Report 7365503-9 (Version None)
Quarter: 2011Q1

REPORT INFORMATION
  Report Type: 
  Country: None (occurrence: None)
  Receive Date: 20110322
  Receipt Date: 20100928
  Transmission Date: 20110831
  Serious: Yes (Hospitalization, Other)
  Sender: FDA-Public Use
  Company Number: US-BAYER-201033808NA

PATIENT
  Sex: Female

DRUGS (1)
  1. YASMIN [Suspect]
     Indication: PRODUCT USED FOR UNKNOWN INDICATION
     Dosage: UNK
     Route: 048
     Dates: start: 20020101, end: 20040101

REACTIONS (7)
  - ANXIETY [None]
  - NEPHROLITHIASIS [None]
  - CHEST DISCOMFORT [None]
  - PANCREATITIS [None]
  - MAJOR DEPRESSION [None]
  - VAGINAL HAEMORRHAGE [None]
  - GALLBLADDER DISORDER [None]
